FAERS Safety Report 21494848 (Version 4)
Quarter: 2024Q4

REPORT INFORMATION
  Report Type: Spontaneous
  Country: US (occurrence: US)
  Receive Date: 20221021
  Receipt Date: 20241010
  Transmission Date: 20250115
  Serious: Yes (Other)
  Sender: NOVARTIS
  Company Number: US-NOVARTISTESTPH-NVSC2022US238291

PATIENT
  Sex: Male
  Weight: 57 kg

DRUGS (1)
  1. PLUVICTO [Suspect]
     Active Substance: LUTETIUM LU-177 VIPIVOTIDE TETRAXETAN
     Indication: Prostate cancer
     Dosage: UNK (EVERY 6 WEEK)
     Route: 042
     Dates: start: 20220629, end: 20220921

REACTIONS (2)
  - Glioblastoma [Unknown]
  - Ill-defined disorder [Unknown]
